FAERS Safety Report 25423065 (Version 1)
Quarter: 2025Q2

REPORT INFORMATION
  Report Type: Spontaneous
  Country: US (occurrence: None)
  Receive Date: 20250610
  Receipt Date: 20250610
  Transmission Date: 20250716
  Serious: Yes (Life-Threatening, Hospitalization, Disabling, Other)
  Sender: FDA-CTU
  Company Number: None

PATIENT
  Age: 52 Year
  Sex: Female

DRUGS (3)
  1. CYMBALTA [Suspect]
     Active Substance: DULOXETINE HYDROCHLORIDE
     Indication: Withdrawal syndrome
     Dates: start: 20201201, end: 20201210
  2. VENLAFAXINE [Suspect]
     Active Substance: VENLAFAXINE HYDROCHLORIDE
     Indication: Stress
     Dates: start: 20100101, end: 20191110
  3. TRAZODONE [Concomitant]
     Active Substance: TRAZODONE HYDROCHLORIDE

REACTIONS (15)
  - Therapeutic product effect decreased [None]
  - Diarrhoea [None]
  - Fatigue [None]
  - Anhedonia [None]
  - Emotional disorder [None]
  - Apathy [None]
  - Withdrawal syndrome [None]
  - Akathisia [None]
  - Suicidal ideation [None]
  - Hypoaesthesia [None]
  - Sexual dysfunction [None]
  - Cognitive disorder [None]
  - Loss of employment [None]
  - Disinhibition [None]
  - Family stress [None]

NARRATIVE: CASE EVENT DATE: 20201201
